FAERS Safety Report 4554063-3 (Version None)
Quarter: 2005Q1

REPORT INFORMATION
  Report Type: 
  Country: None (occurrence: None)
  Receive Date: 20050113
  Receipt Date: 20050113
  Transmission Date: 20050727
  Serious: No
  Sender: FDA-Public Use
  Company Number: None

PATIENT
  Sex: Female

DRUGS (2)
  1. ABILIFY [Suspect]
     Indication: SCHIZOPHRENIA
     Dosage: 5 MG PO DAILY
     Route: 048
     Dates: start: 20041220, end: 20041228
  2. TRAZODONE HCL [Suspect]
     Indication: INSOMNIA
     Dosage: 100 MG PO HS
     Route: 048

REACTIONS (2)
  - ABDOMINAL PAIN [None]
  - URINARY RETENTION [None]
